FAERS Safety Report 18176618 (Version 3)
Quarter: 2021Q3

REPORT INFORMATION
  Report Type: Report from Study
  Country: MX (occurrence: MX)
  Receive Date: 20200820
  Receipt Date: 20210817
  Transmission Date: 20211014
  Serious: Yes (Hospitalization, Other)
  Sender: FDA-Public Use
  Company Number: NVSC2020MX228899

PATIENT
  Age: 59 Year
  Sex: Female
  Weight: 67 kg

DRUGS (9)
  1. METFORMIN [Concomitant]
     Active Substance: METFORMIN HYDROCHLORIDE
     Indication: METABOLIC SYNDROME
     Dosage: QD (2 X 850 UNIT NOT PROVIDED, IN THE MORNING)
     Route: 048
     Dates: start: 2019
  2. PROESSE FORTE [Concomitant]
     Indication: PRODUCT USED FOR UNKNOWN INDICATION
     Dosage: 1 DF, QD
     Route: 048
     Dates: start: 202008
  3. FEMARA [Suspect]
     Active Substance: LETROZOLE
     Indication: BREAST CANCER
     Dosage: 1 DF, QD (2.5 MG)
     Route: 048
     Dates: start: 20200729
  4. FEMARA [Suspect]
     Active Substance: LETROZOLE
     Dosage: UNK  1(2.5 MG) DAILY
     Route: 048
  5. TELMISARTAN. [Concomitant]
     Active Substance: TELMISARTAN
     Indication: HYPERTENSION
     Dosage: 1 DF, QD (40 MG)
     Route: 048
     Dates: start: 201810
  6. PREDIAL PLUS [Concomitant]
     Indication: METABOLIC SYNDROME
     Dosage: 2 DF, QD (850 MG)
     Route: 048
     Dates: start: 201806
  7. EUTIROX [Concomitant]
     Active Substance: LEVOTHYROXINE SODIUM
     Indication: THYROID DISORDER
     Dosage: UNK, QD (1X 75 MCG)
     Route: 048
     Dates: start: 202007
  8. ROSUVASTATIN. [Concomitant]
     Active Substance: ROSUVASTATIN
     Indication: METABOLIC SYNDROME
     Dosage: UNK, QD (1 X 10 MG)
     Route: 048
     Dates: start: 2019
  9. EUTIROX [Concomitant]
     Active Substance: LEVOTHYROXINE SODIUM
     Dosage: 1 DF, QD (75 MCG)
     Route: 065
     Dates: start: 202102

REACTIONS (6)
  - Arthralgia [Not Recovered/Not Resolved]
  - Hypoaesthesia [Unknown]
  - Metastases to thyroid [Recovering/Resolving]
  - COVID-19 [Recovered/Resolved]
  - Anxiety [Not Recovered/Not Resolved]
  - Oxygen saturation decreased [Unknown]

NARRATIVE: CASE EVENT DATE: 20200913
